FAERS Safety Report 20821749 (Version 1)
Quarter: 2022Q2

REPORT INFORMATION
  Report Type: Spontaneous
  Country: US (occurrence: None)
  Receive Date: 20220510
  Receipt Date: 20220510
  Transmission Date: 20220720
  Serious: No
  Sender: FDA-Public Use
  Company Number: None

PATIENT
  Age: 41 Year
  Sex: Female
  Weight: 55.8 kg

DRUGS (1)
  1. HYDROCORTISONE\HYDROQUINONE\KOJIC ACID\NIACINAMIDE [Suspect]
     Active Substance: HYDROCORTISONE\HYDROQUINONE\KOJIC ACID\NIACINAMIDE
     Indication: Pigmentation disorder
     Dosage: OTHER QUANTITY : 1 PUFF(S);?FREQUENCY : DAILY;?

REACTIONS (2)
  - Product label confusion [None]
  - Physical product label issue [None]

NARRATIVE: CASE EVENT DATE: 20211112
